FAERS Safety Report 6956183-2 (Version None)
Quarter: 2010Q3

REPORT INFORMATION
  Report Type: 
  Country: None (occurrence: None)
  Receive Date: 20100830
  Receipt Date: 20100823
  Transmission Date: 20110219
  Serious: Yes (Death, Other)
  Sender: FDA-Public Use
  Company Number: PHHY2010RU56496

PATIENT
  Sex: Male

DRUGS (12)
  1. EXELON [Suspect]
     Indication: CONFUSIONAL STATE
     Dosage: 3 MG
     Route: 048
     Dates: start: 20100308
  2. EXELON [Suspect]
     Dosage: 6MG
  3. EXELON [Suspect]
     Dosage: 9 MG
     Dates: end: 20100312
  4. CYTOFLAVIN [Concomitant]
     Dosage: 10 ML
     Route: 042
     Dates: start: 20100308
  5. CEREBROLYSIN [Concomitant]
     Dosage: 10 ML
     Route: 042
  6. STREAM [Concomitant]
     Dosage: UNK
     Dates: start: 20100308
  7. PANANGIN [Concomitant]
     Dosage: 10 ML
     Route: 042
     Dates: start: 20100308
  8. HEPARIN [Concomitant]
     Dosage: 20000 UN DAILY
     Dates: start: 20100308
  9. NIFEDIPINE [Concomitant]
     Dosage: 30 MG, QD
     Route: 048
     Dates: start: 20100308
  10. DEXASON [Concomitant]
     Dosage: 16 MG/DAY
     Route: 042
     Dates: start: 20100312
  11. OMEPRAZOLE [Concomitant]
     Dosage: 20 MG
     Route: 048
     Dates: start: 20100312
  12. MANNITOL [Concomitant]
     Dosage: 90 G, QD
     Dates: start: 20100312

REACTIONS (2)
  - BRAIN OEDEMA [None]
  - CARDIOPULMONARY FAILURE [None]
